FAERS Safety Report 9780484 (Version 1)
Quarter: 2013Q4

REPORT INFORMATION
  Report Type: Spontaneous
  Country: US (occurrence: US)
  Receive Date: 20131224
  Receipt Date: 20131224
  Transmission Date: 20140711
  Serious: Yes (Hospitalization)
  Sender: FDA-Public Use
  Company Number: US-BIOGENIDEC-2013BI122008

PATIENT
  Age: 52 Year
  Sex: Female

DRUGS (1)
  1. TECFIDERA [Suspect]
     Indication: MULTIPLE SCLEROSIS
     Route: 048
     Dates: start: 201305

REACTIONS (7)
  - Multiple sclerosis relapse [Unknown]
  - Asthenia [Unknown]
  - Dizziness [Unknown]
  - Abasia [Unknown]
  - Pain in extremity [Unknown]
  - Nail discolouration [Unknown]
  - Skin discolouration [Unknown]
